FAERS Safety Report 13337439 (Version 1)
Quarter: 2017Q1

REPORT INFORMATION
  Report Type: Report from Study
  Country: BR (occurrence: BR)
  Receive Date: 20170315
  Receipt Date: 20170315
  Transmission Date: 20170428
  Serious: Yes (Hospitalization)
  Sender: FDA-Public Use
  Company Number: PHHY2015BR163647

PATIENT
  Age: 19 Year
  Sex: Male
  Weight: 56 kg

DRUGS (9)
  1. FOLIC ACID. [Concomitant]
     Active Substance: FOLIC ACID
     Indication: SICKLE CELL ANAEMIA
     Dosage: 5 MG, QD
     Route: 048
  2. AMLODIPINE//AMLODIPINE BESILATE [Concomitant]
     Indication: HYPERTENSION
     Dosage: 2 DF, QD
     Route: 048
  3. SIMVASTATIN. [Concomitant]
     Active Substance: SIMVASTATIN
     Indication: PRODUCT USED FOR UNKNOWN INDICATION
     Dosage: 1 DF, QD
     Route: 048
  4. EXJADE [Suspect]
     Active Substance: DEFERASIROX
     Dosage: 10 MG/KG, QD (1 DF OF 500 MG)
     Route: 048
     Dates: start: 20151103
  5. OMEPRAZOLE. [Concomitant]
     Active Substance: OMEPRAZOLE
     Indication: GASTRIC DISORDER
     Dosage: 1 DF, QD
     Route: 048
  6. ENALAPRIL [Concomitant]
     Active Substance: ENALAPRIL
     Indication: HYPERTENSION
     Dosage: 2 DF, QD
     Route: 048
  7. EXJADE [Suspect]
     Active Substance: DEFERASIROX
     Dosage: 1000 MG, UNK
     Route: 048
  8. HYDREA [Concomitant]
     Active Substance: HYDROXYUREA
     Indication: PRODUCT USED FOR UNKNOWN INDICATION
     Dosage: 2 DF, QD
     Route: 065
  9. EXJADE [Suspect]
     Active Substance: DEFERASIROX
     Indication: SICKLE CELL ANAEMIA
     Dosage: 20 MG/KG, QD (2 DF OF 500 MG)
     Route: 048
     Dates: start: 201408

REACTIONS (20)
  - Hypersensitivity [Recovering/Resolving]
  - Headache [Recovering/Resolving]
  - Weight decreased [Unknown]
  - Blister [Recovering/Resolving]
  - Cerebrovascular accident [Not Recovered/Not Resolved]
  - Abdominal pain [Recovering/Resolving]
  - Skin discolouration [Unknown]
  - Viral infection [Recovering/Resolving]
  - Serum ferritin increased [Unknown]
  - Sickle cell anaemia with crisis [Recovered/Resolved]
  - Vomiting [Recovering/Resolving]
  - Cough [Not Recovered/Not Resolved]
  - Dizziness [Recovered/Resolved]
  - Pruritus [Recovering/Resolving]
  - Visual impairment [Recovered/Resolved]
  - Haemoglobin decreased [Recovered/Resolved]
  - Wound secretion [Unknown]
  - Erythema [Unknown]
  - Pyrexia [Recovering/Resolving]
  - Serum ferritin decreased [Unknown]

NARRATIVE: CASE EVENT DATE: 20160120
